FAERS Safety Report 19212631 (Version 1)
Quarter: 2021Q2

REPORT INFORMATION
  Report Type: Spontaneous
  Country: IT (occurrence: IT)
  Receive Date: 20210504
  Receipt Date: 20210504
  Transmission Date: 20210717
  Serious: Yes (Hospitalization)
  Sender: FDA-Public Use
  Company Number: IT-MYLANLABS-2021M1026474

PATIENT
  Age: 42 Year
  Sex: Female

DRUGS (2)
  1. PARACETAMOL [Suspect]
     Active Substance: ACETAMINOPHEN
     Indication: INFLUENZA
     Dosage: 1000 MILLIGRAM, QD
     Route: 065
  2. TRIPROLIDINE [Concomitant]
     Active Substance: TRIPROLIDINE
     Indication: INFLUENZA
     Dosage: RECEIVED SOMETIMES
     Route: 065

REACTIONS (1)
  - Erythema annulare [Recovered/Resolved]
